FAERS Safety Report 5083759-2 (Version None)
Quarter: 2006Q3

REPORT INFORMATION
  Report Type: 
  Country: None (occurrence: None)
  Receive Date: 20060818
  Receipt Date: 20060808
  Transmission Date: 20061208
  Serious: Yes (Other)
  Sender: FDA-Public Use
  Company Number: JP-ABBOTT-06P-087-0340044-00

PATIENT
  Sex: Female

DRUGS (22)
  1. AKINETON [Suspect]
     Indication: PARKINSONISM
     Route: 048
     Dates: start: 20050405, end: 20050830
  2. AKINETON [Suspect]
     Route: 048
     Dates: start: 20050831, end: 20050903
  3. AKINETON [Suspect]
     Route: 048
     Dates: start: 20050904
  4. LULLAN [Suspect]
     Indication: SCHIZOPHRENIA
     Route: 048
     Dates: start: 20050709, end: 20050715
  5. LULLAN [Suspect]
     Route: 048
     Dates: start: 20050716, end: 20050723
  6. LULLAN [Suspect]
     Route: 048
     Dates: start: 20050724, end: 20050730
  7. LULLAN [Suspect]
     Route: 048
     Dates: start: 20050731
  8. HALOPERIDOL [Suspect]
     Indication: SCHIZOPHRENIA
     Route: 048
     Dates: start: 20050709, end: 20050715
  9. HALOPERIDOL [Suspect]
     Route: 048
     Dates: start: 20050716, end: 20050723
  10. HALOPERIDOL [Suspect]
     Route: 048
     Dates: start: 20050724, end: 20050730
  11. HALOPERIDOL [Suspect]
     Route: 048
     Dates: start: 20050731, end: 20050903
  12. HALOPERIDOL [Suspect]
     Route: 048
     Dates: start: 20050904, end: 20050910
  13. HALOPERIDOL [Suspect]
     Route: 048
     Dates: start: 20050911, end: 20050929
  14. CHLORPROMAZINE HCL [Suspect]
     Indication: SCHIZOPHRENIA
     Route: 048
     Dates: start: 20050709, end: 20050830
  15. CHLORPROMAZINE HYDROCHLORIDE [Suspect]
     Route: 048
     Dates: start: 20050831, end: 20050903
  16. CHLORPROMAZINE HYDROCHLORIDE [Suspect]
     Route: 048
     Dates: start: 20050904
  17. SULPIRIDE [Concomitant]
     Indication: DRUG USE FOR UNKNOWN INDICATION
  18. LORAZEPAM [Concomitant]
     Indication: DRUG USE FOR UNKNOWN INDICATION
  19. ANTIPSYCHOTICS [Concomitant]
     Indication: DRUG USE FOR UNKNOWN INDICATION
  20. DISTIGMINE BROMIDE [Concomitant]
     Indication: DRUG USE FOR UNKNOWN INDICATION
     Route: 048
     Dates: start: 20050901, end: 20050902
  21. DISTIGMINE BROMIDE [Concomitant]
     Dates: start: 20050903
  22. DIAZEPAM [Concomitant]
     Indication: DRUG USE FOR UNKNOWN INDICATION

REACTIONS (3)
  - DYSURIA [None]
  - FEELING JITTERY [None]
  - NEUROGENIC BLADDER [None]
